FAERS Safety Report 17376403 (Version 1)
Quarter: 2020Q1

REPORT INFORMATION
  Report Type: Spontaneous
  Country: US (occurrence: US)
  Receive Date: 20200205
  Receipt Date: 20200205
  Transmission Date: 20200409
  Serious: Yes (Disabling)
  Sender: FDA-Public Use
  Company Number: None

PATIENT
  Age: 46 Year
  Sex: Female
  Weight: 49.5 kg

DRUGS (5)
  1. CLONAZEPAM. [Suspect]
     Active Substance: CLONAZEPAM
     Indication: ANXIETY
     Dosage: ?          QUANTITY:45 TABLET(S);?
     Route: 048
     Dates: start: 20191210, end: 20200104
  2. VALERIAN [Concomitant]
     Active Substance: VALERIAN
  3. CLONAZEPAM. [Suspect]
     Active Substance: CLONAZEPAM
     Indication: PANIC DISORDER
     Dosage: ?          QUANTITY:45 TABLET(S);?
     Route: 048
     Dates: start: 20191210, end: 20200104
  4. MULTIVITAMIN [Concomitant]
     Active Substance: VITAMINS
  5. MELATONIN [Concomitant]
     Active Substance: MELATONIN

REACTIONS (24)
  - Anxiety [None]
  - Formication [None]
  - Suicidal ideation [None]
  - Muscle spasms [None]
  - Depression [None]
  - Impaired work ability [None]
  - Feeling abnormal [None]
  - Loss of personal independence in daily activities [None]
  - Muscle twitching [None]
  - Burning sensation [None]
  - Abdominal distension [None]
  - Chills [None]
  - Paraesthesia [None]
  - Akathisia [None]
  - Respiration abnormal [None]
  - Heart rate irregular [None]
  - Feeling of despair [None]
  - Withdrawal syndrome [None]
  - Constipation [None]
  - Oedema [None]
  - Fatigue [None]
  - Panic reaction [None]
  - Tremor [None]
  - Asthenia [None]

NARRATIVE: CASE EVENT DATE: 20200104
